FAERS Safety Report 11055587 (Version 1)
Quarter: 2015Q2

REPORT INFORMATION
  Report Type: Spontaneous
  Country: GB (occurrence: GB)
  Receive Date: 20150422
  Receipt Date: 20150422
  Transmission Date: 20150821
  Serious: Yes (Disabling)
  Sender: FDA-Public Use
  Company Number: GB-TEVA-555988ACC

PATIENT
  Age: 37 Year
  Sex: Male
  Weight: 114.3 kg

DRUGS (4)
  1. AMOXICILLIN. [Concomitant]
     Active Substance: AMOXICILLIN
     Dosage: 2 GRAM DAILY; 1G BD
  2. CLENIL MODULITE [Concomitant]
     Active Substance: BECLOMETHASONE DIPROPIONATE
     Indication: UPPER-AIRWAY COUGH SYNDROME
     Dosage: CLENIL INHALER USED OCCASIONALLY
     Route: 055
  3. LEVOFLOXACIN. [Suspect]
     Active Substance: LEVOFLOXACIN
     Indication: HELICOBACTER INFECTION
     Dosage: 1000 MILLIGRAM DAILY;
     Route: 048
     Dates: start: 20150329, end: 20150407
  4. PANTOPRAZOLE [Concomitant]
     Active Substance: PANTOPRAZOLE SODIUM
     Dosage: 80 MILLIGRAM DAILY; 40MG TWICE DAILY (BD)

REACTIONS (7)
  - Dyspnoea [Recovering/Resolving]
  - Muscle spasms [Not Recovered/Not Resolved]
  - Chest discomfort [Recovering/Resolving]
  - Muscle tightness [Recovered/Resolved]
  - Tendonitis [Not Recovered/Not Resolved]
  - Abasia [Unknown]
  - Pain in extremity [Not Recovered/Not Resolved]
